FAERS Safety Report 15993872 (Version 2)
Quarter: 2019Q1

REPORT INFORMATION
  Report Type: Report from Study
  Country: CO (occurrence: CO)
  Receive Date: 20190222
  Receipt Date: 20190325
  Transmission Date: 20190418
  Serious: Yes (Other)
  Sender: FDA-Public Use
  Company Number: CO-SA-2018SA317421

PATIENT
  Age: 35 Year
  Sex: Female

DRUGS (1)
  1. ALEMTUZUMAB [Suspect]
     Active Substance: ALEMTUZUMAB
     Indication: MULTIPLE SCLEROSIS
     Dosage: UNK (12MG/1.2ML)
     Route: 041
     Dates: start: 20181113, end: 20181115

REACTIONS (27)
  - Condition aggravated [Not Recovered/Not Resolved]
  - Nausea [Recovered/Resolved]
  - Lymphocyte count decreased [Not Recovered/Not Resolved]
  - Cough [Recovered/Resolved]
  - Paraesthesia [Not Recovered/Not Resolved]
  - Chest discomfort [Recovered/Resolved]
  - Abdominal pain [Not Recovered/Not Resolved]
  - Muscle spasticity [Not Recovered/Not Resolved]
  - Rash [Recovered/Resolved]
  - Tachycardia [Not Recovered/Not Resolved]
  - pH urine increased [Recovered/Resolved]
  - Asthenia [Recovered/Resolved]
  - Insomnia [Recovered/Resolved]
  - Monocyte count decreased [Recovered/Resolved]
  - Bradycardia [Recovered/Resolved]
  - Infusion site oedema [Recovered/Resolved]
  - Fatigue [Not Recovered/Not Resolved]
  - Central venous catheterisation [Recovered/Resolved]
  - Eosinophil count increased [Recovered/Resolved]
  - Infusion site extravasation [Recovered/Resolved]
  - Infusion site rash [Recovered/Resolved]
  - Pain in extremity [Not Recovered/Not Resolved]
  - Oedema peripheral [Recovered/Resolved]
  - Headache [Recovered/Resolved]
  - Dizziness [Recovered/Resolved]
  - White blood cell count decreased [Not Recovered/Not Resolved]
  - Dyspnoea [Not Recovered/Not Resolved]

NARRATIVE: CASE EVENT DATE: 201811
